FAERS Safety Report 20005502 (Version 1)
Quarter: 2021Q4

REPORT INFORMATION
  Report Type: Spontaneous
  Country: US (occurrence: US)
  Receive Date: 20211028
  Receipt Date: 20211028
  Transmission Date: 20220303
  Serious: Yes (Hospitalization, Other)
  Sender: FDA-Public Use
  Company Number: US-HIKMA PHARMACEUTICALS USA INC.-US-H14001-21-04546

PATIENT

DRUGS (3)
  1. DOXORUBICIN [Suspect]
     Active Substance: DOXORUBICIN
     Indication: Soft tissue sarcoma
     Route: 040
  2. DOXORUBICIN [Suspect]
     Active Substance: DOXORUBICIN
     Route: 040
  3. PEMBROLIZUMAB [Suspect]
     Active Substance: PEMBROLIZUMAB
     Indication: Soft tissue sarcoma
     Route: 042

REACTIONS (1)
  - Autoimmune hepatitis [Unknown]
